FAERS Safety Report 4353247-7 (Version None)
Quarter: 2004Q2

REPORT INFORMATION
  Report Type: 
  Country: None (occurrence: None)
  Receive Date: 20040429
  Receipt Date: 20040310
  Transmission Date: 20050107
  Serious: Yes (Hospitalization)
  Sender: FDA-Public Use
  Company Number: REL-RIR-110

PATIENT
  Age: 66 Year
  Sex: Male

DRUGS (5)
  1. RYTHMOL (PROPAFENONE) [Suspect]
     Indication: ATRIAL FIBRILLATION
     Dosage: 600 MG QD ORAL
     Route: 048
     Dates: start: 20040115, end: 20040202
  2. AMIODARONE HCL [Suspect]
     Indication: ATRIAL FIBRILLATION
     Dosage: 200 MG QD ORAL
     Route: 048
     Dates: start: 20040115, end: 20040202
  3. INDAPARINE [Suspect]
     Indication: ATRIAL FIBRILLATION
     Dosage: 1 QD, ORAL
     Route: 048
     Dates: start: 20040115, end: 20040202
  4. CANDESARTAN CILEXETIL [Suspect]
     Indication: ATRIAL FIBRILLATION
     Dosage: 1 QD, ORAL
     Route: 048
     Dates: start: 20040115, end: 20040202
  5. FLUINDIONE [Suspect]
     Indication: ATRIAL FIBRILLATION
     Dosage: 10 MG, QD, ORAL
     Route: 048
     Dates: start: 20040115

REACTIONS (2)
  - RASH ERYTHEMATOUS [None]
  - RASH PUSTULAR [None]
